FAERS Safety Report 9891063 (Version 1)
Quarter: 2014Q1

REPORT INFORMATION
  Report Type: Spontaneous
  Country: TW (occurrence: None)
  Receive Date: 20140210
  Receipt Date: 20140210
  Transmission Date: 20141002
  Serious: Yes (Other)
  Sender: FDA-Public Use
  Company Number: 2014P1000826

PATIENT
  Age: 22 Year
  Sex: 0

DRUGS (2)
  1. OLANZAPINE [Suspect]
     Indication: AGITATION
  2. OLANZAPINE [Suspect]
     Indication: SELF INJURIOUS BEHAVIOUR

REACTIONS (5)
  - Hyponatraemia [None]
  - Grand mal convulsion [None]
  - Hypokalaemia [None]
  - Hypocalcaemia [None]
  - Hypomagnesaemia [None]
